FAERS Safety Report 5157918-4 (Version None)
Quarter: 2006Q4

REPORT INFORMATION
  Report Type: 
  Country: None (occurrence: None)
  Receive Date: 20061122
  Receipt Date: 20061122
  Transmission Date: 20070319
  Serious: Yes (Life-Threatening, Hospitalization)
  Sender: FDA-Public Use
  Company Number: None

PATIENT
  Sex: Female

DRUGS (1)
  1. THALIDOMIDE [Suspect]
     Indication: AMYOTROPHIC LATERAL SCLEROSIS
     Dosage: 400 MG/DAY CURRENT
     Dates: start: 20060525

REACTIONS (2)
  - NEUROLOGICAL SYMPTOM [None]
  - PULMONARY EMBOLISM [None]
